FAERS Safety Report 7037978-6 (Version None)
Quarter: 2010Q4

REPORT INFORMATION
  Report Type: 
  Country: None (occurrence: None)
  Receive Date: 20101011
  Receipt Date: 20101005
  Transmission Date: 20110411
  Serious: Yes (Other)
  Sender: FDA-Public Use
  Company Number: FR-SANOFI-AVENTIS-2010SA059529

PATIENT
  Age: 54 Year
  Sex: Male

DRUGS (6)
  1. LANTUS [Suspect]
     Route: 058
     Dates: start: 20071227
  2. EPIVIR [Suspect]
     Route: 048
     Dates: start: 20071027
  3. KALETRA [Suspect]
     Route: 048
     Dates: start: 20040101
  4. INVIRASE [Suspect]
     Route: 048
     Dates: start: 20051125
  5. ANTIVIRALS FOR SYSTEMIC USE [Suspect]
     Indication: HEPATITIS B
     Route: 048
     Dates: start: 20080301
  6. ACTRAPID HUMAN [Suspect]
     Route: 058
     Dates: start: 20071227

REACTIONS (1)
  - AGRANULOCYTOSIS [None]
